FAERS Safety Report 20651977 (Version 1)
Quarter: 2022Q1

REPORT INFORMATION
  Report Type: Other
  Country: ES (occurrence: ES)
  Receive Date: 20220330
  Receipt Date: 20220330
  Transmission Date: 20220423
  Serious: Yes (Other)
  Sender: FDA-Public Use
  Company Number: ES-CELLTRION HEALTHCARE HUNGARY KFT-2022ES003024

PATIENT

DRUGS (11)
  1. RITUXIMAB [Suspect]
     Active Substance: RITUXIMAB
     Indication: Nephrotic syndrome
     Dosage: 375 MG/M2 (IN SALINE FISIOLOGICAL SOLUTION, CONCENTRATION 1 MG/ML), 7 CYCLES WITH 2/2/2/2/1/1/1 DOSE
     Route: 041
  2. RITUXIMAB [Suspect]
     Active Substance: RITUXIMAB
     Dosage: 375 MG/M2 (IN SALINE FISIOLOGICAL SOLUTION, CONCENTRATION 1 MG/ML), 7 CYCLES WITH 2/2/2/2/1/1/1 DOSE
     Route: 042
  3. RITUXIMAB [Suspect]
     Active Substance: RITUXIMAB
     Dosage: 375 MG/M2 (IN SALINE FISIOLOGICAL SOLUTION, CONCENTRATION 1 MG/ML), 7 CYCLES WITH 2/2/2/2/1/1/1 DOSE
     Route: 042
  4. RITUXIMAB [Suspect]
     Active Substance: RITUXIMAB
     Dosage: 375 MG/M2 (IN SALINE FISIOLOGICAL SOLUTION, CONCENTRATION 1 MG/ML), 7 CYCLES WITH 2/2/2/2/1/1/1 DOSE
     Route: 042
  5. RITUXIMAB [Suspect]
     Active Substance: RITUXIMAB
     Dosage: 375 MG/M2 (IN SALINE FISIOLOGICAL SOLUTION, CONCENTRATION 1 MG/ML), 7 CYCLES WITH 2/2/2/2/1/1/1 DOSE
     Route: 042
  6. RITUXIMAB [Suspect]
     Active Substance: RITUXIMAB
     Dosage: 375 MG/M2 (IN SALINE FISIOLOGICAL SOLUTION, CONCENTRATION 1 MG/ML), 7 CYCLES WITH 2/2/2/2/1/1/1 DOSE
     Route: 042
  7. RITUXIMAB [Suspect]
     Active Substance: RITUXIMAB
     Dosage: 375 MG/M2 (IN SALINE FISIOLOGICAL SOLUTION, CONCENTRATION 1 MG/ML), 7 CYCLES WITH 2/2/2/2/1/1/1 DOSE
     Route: 042
  8. PREDNISONE [Suspect]
     Active Substance: PREDNISONE
     Indication: Nephrotic syndrome
     Route: 065
  9. ACETAMINOPHEN [Concomitant]
     Active Substance: ACETAMINOPHEN
     Indication: Premedication
     Dosage: 15 MG/KG (30-60 MIN BEFORE DRUG ADMINISTRATION)
     Route: 048
  10. DEXCHLORPHENIRAMINE [Concomitant]
     Active Substance: DEXCHLORPHENIRAMINE
     Indication: Premedication
     Dosage: 0.1 MG/KG (30-60 MIN BEFORE DRUG ADMINISTRATION)
  11. SULFAMETHOXAZOLE\TRIMETHOPRIM [Concomitant]
     Active Substance: SULFAMETHOXAZOLE\TRIMETHOPRIM
     Indication: Prophylaxis

REACTIONS (3)
  - Bronchospasm [Unknown]
  - Off label use [Unknown]
  - Disease recurrence [Unknown]
